FAERS Safety Report 7006885-7 (Version None)
Quarter: 2010Q3

REPORT INFORMATION
  Report Type: 
  Country: None (occurrence: None)
  Receive Date: 20100922
  Receipt Date: 20100913
  Transmission Date: 20110219
  Serious: Yes (Hospitalization, Other)
  Sender: FDA-Public Use
  Company Number: US-ELI_LILLY_AND_COMPANY-US201009004019

PATIENT
  Sex: Female
  Weight: 76.19 kg

DRUGS (3)
  1. BYETTA [Suspect]
     Indication: TYPE 2 DIABETES MELLITUS
     Dosage: 5 UG, 2/D
     Route: 058
     Dates: start: 20050101
  2. BYETTA [Suspect]
     Dosage: 10 UG, 2/D
     Route: 058
  3. ACTOS [Concomitant]
     Dosage: 15 MG, DAILY (1/D)

REACTIONS (5)
  - BLOOD GLUCOSE INCREASED [None]
  - BREAST CANCER [None]
  - BREAST MASS [None]
  - INFECTION [None]
  - TYMPANIC MEMBRANE PERFORATION [None]
